FAERS Safety Report 8050990-3 (Version None)
Quarter: 2012Q1

REPORT INFORMATION
  Report Type: 
  Country: None (occurrence: None)
  Receive Date: 20120117
  Receipt Date: 20120111
  Transmission Date: 20120608
  Serious: Yes (Other)
  Sender: FDA-Public Use
  Company Number: PHHY2011MX114549

PATIENT
  Sex: Female

DRUGS (2)
  1. MICARDIS [Concomitant]
     Indication: HYPERTENSION
     Dosage: 2 DF, UNK
  2. ZOLEDRONOC ACID [Suspect]
     Indication: OSTEOPOROSIS
     Dosage: 5 MG, (YEARLY)
     Route: 042
     Dates: start: 20111222

REACTIONS (5)
  - INFLAMMATION [None]
  - BONE PAIN [None]
  - PHARYNGITIS [None]
  - BACK PAIN [None]
  - TINNITUS [None]
